FAERS Safety Report 5277584-7 (Version None)
Quarter: 2007Q1

REPORT INFORMATION
  Report Type: 
  Country: None (occurrence: None)
  Receive Date: 20070321
  Receipt Date: 20070312
  Transmission Date: 20070707
  Serious: Yes (Other)
  Sender: FDA-Public Use
  Company Number: CHPA2007US03231

PATIENT
  Age: 59 Year
  Sex: Female
  Weight: 52.2 kg

DRUGS (4)
  1. TRANSDERM SCOP [Suspect]
     Indication: MOTION SICKNESS
     Dosage: 1.5 MG, Q72H, TRANSDERMAL
     Route: 062
     Dates: start: 20061118, end: 20061125
  2. ANTIHYPERTENSIVE DRUGS (NO INGREDIENTS/SUBSTANCES) [Concomitant]
  3. CHOLESTEROL-AND TRIGLYCERIDE REDUCERS (NO INGREDIENTS/SUBSTANCES) [Concomitant]
  4. DRUG THERAPY NOS (DRUG THERAPY NOS) [Concomitant]

REACTIONS (4)
  - AMNESIA [None]
  - CONFUSIONAL STATE [None]
  - SPEECH DISORDER [None]
  - VISION BLURRED [None]
